FAERS Safety Report 6552349-4 (Version None)
Quarter: 2010Q1

REPORT INFORMATION
  Report Type: 
  Country: None (occurrence: None)
  Receive Date: 20100126
  Receipt Date: 20100112
  Transmission Date: 20100710
  Serious: Yes (Other)
  Sender: FDA-Public Use
  Company Number: GB-MYLANLABS-2010S1000473

PATIENT
  Sex: Male

DRUGS (4)
  1. FUROSEMIDE [Interacting]
     Indication: FALLOT'S TETRALOGY
  2. ASPIRIN [Interacting]
     Indication: FALLOT'S TETRALOGY
  3. DIAZOXIDE [Interacting]
     Indication: HYPERINSULINISM
  4. SPIRONOLACTONE [Suspect]
     Indication: FALLOT'S TETRALOGY

REACTIONS (2)
  - DRUG INTERACTION [None]
  - HYPERGLYCAEMIA [None]
